FAERS Safety Report 6786562-8 (Version None)
Quarter: 2010Q2

REPORT INFORMATION
  Report Type: 
  Country: None (occurrence: None)
  Receive Date: 20100623
  Receipt Date: 20100616
  Transmission Date: 20101027
  Serious: Yes (Disabling)
  Sender: FDA-Public Use
  Company Number: CA-MERCK-1006USA02802

PATIENT
  Age: 53 Year
  Sex: Female
  Weight: 54 kg

DRUGS (10)
  1. PRIMAXIN [Suspect]
     Route: 042
  2. CEFTRIAXONE SODIUM [Suspect]
     Route: 042
  3. FLUCONAZOLE [Concomitant]
     Route: 065
  4. FLUTICASONE [Concomitant]
     Route: 065
  5. FUROSEMIDE [Concomitant]
     Route: 065
  6. LEVOTHYROXINE SODIUM [Concomitant]
     Route: 065
  7. METOCLOPRAMIDE [Concomitant]
     Route: 065
  8. RANITIDINE [Concomitant]
     Route: 065
  9. ALBUTEROL [Concomitant]
     Route: 065
  10. SALMETEROL [Concomitant]
     Route: 065

REACTIONS (3)
  - CLONIC CONVULSION [None]
  - DRUG INTERACTION [None]
  - TREMOR [None]
